FAERS Safety Report 6114274-2 (Version None)
Quarter: 2009Q1

REPORT INFORMATION
  Report Type: 
  Country: None (occurrence: None)
  Receive Date: 20090312
  Receipt Date: 20081017
  Transmission Date: 20090719
  Serious: No
  Sender: FDA-Public Use
  Company Number: US-ABBOTT-08P-163-0483082-00

PATIENT
  Age: 16 Year
  Sex: Female

DRUGS (4)
  1. DEPAKOTE [Suspect]
     Indication: EPILEPSY
     Dosage: 750 MG DAILY
  2. GABAPENTIN [Suspect]
     Indication: EPILEPSY
     Dosage: 300 MG DAILY
  3. METHYLPHENIDATE HCL [Concomitant]
     Indication: PSYCHOMOTOR HYPERACTIVITY
  4. CLOTADIN [Concomitant]
     Indication: INSOMNIA
     Dates: start: 19990113, end: 19990324

REACTIONS (1)
  - URINARY TRACT INFECTION [None]
